FAERS Safety Report 8696891 (Version 5)
Quarter: 2014Q2

REPORT INFORMATION
  Report Type: Report from Study
  Country: CA (occurrence: CA)
  Receive Date: 20120801
  Receipt Date: 20140415
  Transmission Date: 20141212
  Serious: Yes (Other)
  Sender: FDA-Public Use
  Company Number: CA-ROCHE-1093721

PATIENT
  Age: 57 Year
  Sex: Male
  Weight: 106.69 kg

DRUGS (9)
  1. RITUXAN [Suspect]
     Indication: RHEUMATOID ARTHRITIS
     Dosage: MOST RECENT DOSE ON 14/MAR/2012
     Route: 042
     Dates: start: 20120229
  2. PREDNISONE [Suspect]
     Indication: CHRONIC OBSTRUCTIVE PULMONARY DISEASE
     Route: 065
     Dates: end: 2013
  3. METHYLPREDNISOLONE [Concomitant]
     Indication: PREMEDICATION
     Route: 042
  4. HUMULIN R [Concomitant]
     Indication: DIABETES MELLITUS
  5. HUMULIN N [Concomitant]
     Indication: DIABETES MELLITUS
  6. PLAQUENIL [Concomitant]
  7. METHOTREXATE [Concomitant]
  8. ACETAMINOPHEN [Concomitant]
     Indication: PREMEDICATION
     Route: 048
     Dates: start: 20130313
  9. DIPHENHYDRAMINE HCL [Concomitant]
     Indication: PREMEDICATION
     Route: 048
     Dates: start: 20130313

REACTIONS (5)
  - Chronic obstructive pulmonary disease [Not Recovered/Not Resolved]
  - Osteoarthritis [Not Recovered/Not Resolved]
  - Infusion related reaction [Recovered/Resolved]
  - Blood glucose abnormal [Unknown]
  - Arthralgia [Not Recovered/Not Resolved]
